FAERS Safety Report 7496492-4 (Version None)
Quarter: 2011Q2

REPORT INFORMATION
  Report Type: 
  Country: None (occurrence: None)
  Receive Date: 20110523
  Receipt Date: 20110513
  Transmission Date: 20111010
  Serious: Yes (Hospitalization)
  Sender: FDA-Public Use
  Company Number: US-BRACCO-006250

PATIENT
  Sex: Female
  Weight: 56.51 kg

DRUGS (6)
  1. MULTIHANCE [Suspect]
     Indication: ANGIOGRAM
     Route: 042
     Dates: start: 20110426, end: 20110426
  2. PROTON PUMP INHIBITORS [Concomitant]
  3. TETRACYCLINE [Concomitant]
  4. WELLBUTRIN [Concomitant]
  5. ZOLOFT [Concomitant]
  6. MULTIHANCE [Suspect]
     Indication: COLITIS ISCHAEMIC
     Route: 042
     Dates: start: 20110426, end: 20110426

REACTIONS (3)
  - ANAPHYLACTIC REACTION [None]
  - CARDIAC ENZYMES INCREASED [None]
  - ARTERIOSPASM CORONARY [None]
